FAERS Safety Report 13160434 (Version 2)
Quarter: 2017Q1

REPORT INFORMATION
  Report Type: Spontaneous
  Country: US (occurrence: US)
  Receive Date: 20170127
  Receipt Date: 20170215
  Transmission Date: 20170428
  Serious: Yes (Other)
  Sender: FDA-Public Use
  Company Number: US-ALLERGAN-1702377US

PATIENT
  Sex: Male

DRUGS (2)
  1. BENTYL [Suspect]
     Active Substance: DICYCLOMINE HYDROCHLORIDE
     Indication: VOMITING
     Dosage: UNK, SINGLE
     Route: 030
     Dates: start: 20161225
  2. BENTYL [Suspect]
     Active Substance: DICYCLOMINE HYDROCHLORIDE
     Indication: MUSCLE SPASMS

REACTIONS (3)
  - Muscle atrophy [Recovering/Resolving]
  - Off label use [Unknown]
  - Muscle necrosis [Recovering/Resolving]

NARRATIVE: CASE EVENT DATE: 20161225
